FAERS Safety Report 6300166-2 (Version None)
Quarter: 2009Q3

REPORT INFORMATION
  Report Type: 
  Country: None (occurrence: None)
  Receive Date: 20090806
  Receipt Date: 20090803
  Transmission Date: 20100115
  Serious: Yes (Death, Hospitalization)
  Sender: FDA-Public Use
  Company Number: PHEH2009US06814

PATIENT
  Sex: Female

DRUGS (20)
  1. GLEEVEC [Suspect]
     Indication: CHRONIC MYELOID LEUKAEMIA
     Dosage: 600 MG/DAY
     Route: 048
     Dates: start: 20051201, end: 20090401
  2. ASPIRIN [Concomitant]
  3. NORVASC [Concomitant]
  4. IPRATROPIUM BROMIDE [Concomitant]
  5. ALBUTEROL [Concomitant]
  6. NEXIUM [Concomitant]
  7. NASONEX [Concomitant]
  8. ADVAIR HFA [Concomitant]
  9. FAMVIR                                  /NET/ [Concomitant]
  10. PREDNISONE [Concomitant]
  11. ZETIA [Concomitant]
  12. MEPRON [Concomitant]
  13. LANTUS [Concomitant]
  14. PROGRAF [Concomitant]
     Dosage: 1 MG, QD
     Route: 048
  15. DOXYCYCLINE [Concomitant]
  16. FUROSEMIDE [Concomitant]
  17. INSULIN [Concomitant]
     Indication: DIABETES MELLITUS
     Dosage: SLIDING SCALE
  18. VANCOMYCIN [Concomitant]
     Dosage: 250 MG, Q6H
     Route: 048
  19. HYDROCORTISONE [Concomitant]
     Dosage: 100 MG, Q8H
     Route: 042
  20. LASIX [Concomitant]
     Indication: CARDIAC FAILURE CONGESTIVE
     Dosage: 80 IV TID

REACTIONS (7)
  - ACUTE MYOCARDIAL INFARCTION [None]
  - EJECTION FRACTION DECREASED [None]
  - ELECTROCARDIOGRAM Q WAVES [None]
  - KIDNEY TRANSPLANT REJECTION [None]
  - MYOCARDIAL INFARCTION [None]
  - RENAL FAILURE ACUTE [None]
  - TROPONIN INCREASED [None]
